FAERS Safety Report 11489352 (Version 1)
Quarter: 2015Q3

REPORT INFORMATION
  Report Type: Spontaneous
  Country: US (occurrence: US)
  Receive Date: 20150910
  Receipt Date: 20150910
  Transmission Date: 20151125
  Serious: No
  Sender: FDA-Public Use
  Company Number: US-ROCHE-1431185

PATIENT
  Sex: Male

DRUGS (5)
  1. VISTARIL [Concomitant]
     Active Substance: HYDROXYZINE PAMOATE
  2. BENZTROPINE [Concomitant]
     Active Substance: BENZTROPINE
  3. PEGASYS [Suspect]
     Active Substance: PEGINTERFERON ALFA-2A
     Indication: CHRONIC HEPATITIS C
     Route: 058
     Dates: start: 20140522
  4. GABAPENTIN. [Concomitant]
     Active Substance: GABAPENTIN
  5. ABILIFY [Concomitant]
     Active Substance: ARIPIPRAZOLE

REACTIONS (4)
  - Pain in extremity [Unknown]
  - Pain [Unknown]
  - Malaise [Unknown]
  - Irritability [Unknown]
